FAERS Safety Report 4489168-9 (Version None)
Quarter: 2004Q4

REPORT INFORMATION
  Report Type: 
  Country: None (occurrence: None)
  Receive Date: 20041029
  Receipt Date: 20040503
  Transmission Date: 20050328
  Serious: Yes (Hospitalization)
  Sender: FDA-Public Use
  Company Number: US-BRISTOL-MYERS SQUIBB COMPANY-12577615

PATIENT
  Age: 64 Year
  Sex: Female
  Weight: 66 kg

DRUGS (11)
  1. GLUCOPHAGE XR [Suspect]
     Indication: DIABETES MELLITUS
     Dosage: DURATION OF THERAPY: 7-8 MONTHS
     Route: 048
  2. GLYBURIDE [Concomitant]
     Dosage: DURATION OF THERAPY: FEW YEARS
  3. CARDIZEM CD [Concomitant]
  4. VALIUM [Concomitant]
  5. DALLERGY [Concomitant]
  6. PRINIVIL [Concomitant]
     Dosage: DURATION OF THERAPY: FEW YEARS
  7. SYNTHROID [Concomitant]
     Dosage: DURATION OF THERAPY: FEW YEARS
  8. CYTOMEL [Concomitant]
     Dosage: DURATION OF THERAPY: FEW YEARS
  9. PLENDIL [Concomitant]
  10. PLAVIX [Concomitant]
  11. ALDACTONE [Concomitant]

REACTIONS (11)
  - ABDOMINAL DISTENSION [None]
  - ABDOMINAL PAIN UPPER [None]
  - BACK PAIN [None]
  - BLOOD GLUCOSE INCREASED [None]
  - BLOOD PRESSURE INCREASED [None]
  - CONFUSIONAL STATE [None]
  - FATIGUE [None]
  - NAUSEA [None]
  - NERVOUSNESS [None]
  - SOMNOLENCE [None]
  - STOMACH DISCOMFORT [None]
